FAERS Safety Report 23553418 (Version 1)
Quarter: 2024Q1

REPORT INFORMATION
  Report Type: Spontaneous
  Country: GB (occurrence: GB)
  Receive Date: 20240222
  Receipt Date: 20240222
  Transmission Date: 20240410
  Serious: Yes (Hospitalization, Other)
  Sender: FDA-Public Use
  Company Number: None

PATIENT
  Age: 61 Year
  Sex: Female

DRUGS (1)
  1. ZOLEDRONIC ACID [Suspect]
     Active Substance: ZOLEDRONIC ACID
     Indication: Osteoporosis
     Dosage: 5 MILLIGRAM (5MG GIVEN ONCE)
     Route: 065
     Dates: start: 20210701

REACTIONS (3)
  - Deafness [Not Recovered/Not Resolved]
  - Back pain [Recovered/Resolved]
  - Bundle branch block left [Recovered/Resolved with Sequelae]

NARRATIVE: CASE EVENT DATE: 20210702
